FAERS Safety Report 4923992-0 (Version None)
Quarter: 2006Q1

REPORT INFORMATION
  Report Type: 
  Country: None (occurrence: None)
  Receive Date: 20060221
  Receipt Date: 20060208
  Transmission Date: 20060701
  Serious: Yes (Hospitalization)
  Sender: FDA-Public Use
  Company Number: 2006020635

PATIENT
  Age: 21 Year
  Sex: Male

DRUGS (1)
  1. VIAGRA [Suspect]
     Indication: ERECTILE DYSFUNCTION
     Dosage: (100 MG, UNKNOWN), ORAL  (THERAPY DATES:  MONTHS AGO - UNKNOWN)
     Route: 048

REACTIONS (1)
  - HEPATITIS CHOLESTATIC [None]
